FAERS Safety Report 18759487 (Version 1)
Quarter: 2021Q1

REPORT INFORMATION
  Report Type: Spontaneous
  Country: US (occurrence: US)
  Receive Date: 20210119
  Receipt Date: 20210119
  Transmission Date: 20210419
  Serious: No
  Sender: FDA-Public Use
  Company Number: US-PFIZER INC-2019246204

PATIENT
  Age: 80 Year
  Sex: Female
  Weight: 63.5 kg

DRUGS (5)
  1. LYRICA [Suspect]
     Active Substance: PREGABALIN
     Indication: NEUROPATHY PERIPHERAL
     Dosage: 75 MG, ALTERNATE DAY
  2. PRAVASTATIN. [Concomitant]
     Active Substance: PRAVASTATIN
     Indication: BLOOD CHOLESTEROL INCREASED
     Dosage: 40 MG, 1X/DAY
  3. LYRICA [Suspect]
     Active Substance: PREGABALIN
     Dosage: 75 MG, 1X/DAY (ONE CAPSULE AT NIGHT)
     Route: 048
  4. LYRICA [Suspect]
     Active Substance: PREGABALIN
     Dosage: 75 MG, DAILY
     Route: 048
     Dates: start: 20201106
  5. IRON [Concomitant]
     Active Substance: IRON
     Dosage: UNK, MONTHLY

REACTIONS (2)
  - Intentional product misuse [Unknown]
  - Confusional state [Unknown]
